FAERS Safety Report 10557580 (Version 2)
Quarter: 2015Q1

REPORT INFORMATION
  Report Type: Spontaneous
  Country: US (occurrence: US)
  Receive Date: 20141031
  Receipt Date: 20150327
  Transmission Date: 20150720
  Serious: Yes (Death, Other)
  Sender: FDA-Public Use
  Company Number: US-SA-2014SA146728

PATIENT
  Age: 62 Year
  Sex: Female

DRUGS (9)
  1. EPLERENONE. [Concomitant]
     Active Substance: EPLERENONE
     Indication: HYPERTENSION
     Dosage: 2 IN AM AND 1 PM
  2. NOVOLOG [Concomitant]
     Active Substance: INSULIN ASPART
     Indication: DIABETES MELLITUS
     Dosage: 8 UNITS/ 12,000
  3. LEVEMIR [Concomitant]
     Active Substance: INSULIN DETEMIR
     Indication: DIABETES MELLITUS
     Dosage: 10 U GTTS DOSE:10 UNIT(S)
  4. CREON [Concomitant]
     Active Substance: PANCRELIPASE AMYLASE\PANCRELIPASE LIPASE\PANCRELIPASE PROTEASE
     Indication: PANCREATIC ENZYMES
     Dates: start: 201309
  5. OXYCODONE [Concomitant]
     Active Substance: OXYCODONE
     Dates: start: 201309
  6. FERREX [Concomitant]
     Indication: BLOOD IRON DECREASED
  7. CEREZYME [Suspect]
     Active Substance: IMIGLUCERASE
     Indication: GAUCHER^S DISEASE
     Dosage: DOSE:2800 UNIT(S)
     Route: 042
     Dates: start: 200503
  8. CEREZYME [Suspect]
     Active Substance: IMIGLUCERASE
     Indication: GAUCHER^S DISEASE
     Dosage: DOSE:2800 UNIT(S)
     Route: 042
     Dates: start: 20140724, end: 20140929
  9. VPRIV [Suspect]
     Active Substance: VELAGLUCERASE ALFA
     Route: 065

REACTIONS (3)
  - Diabetes mellitus [Fatal]
  - Adenocarcinoma pancreas [Fatal]
  - Jaundice cholestatic [Unknown]

NARRATIVE: CASE EVENT DATE: 201308
